FAERS Safety Report 20796718 (Version 1)
Quarter: 2022Q2

REPORT INFORMATION
  Report Type: Spontaneous
  Country: US (occurrence: US)
  Receive Date: 20220506
  Receipt Date: 20220506
  Transmission Date: 20220721
  Serious: Yes (Other)
  Sender: FDA-Public Use
  Company Number: US-GILEAD-2022-0580369

PATIENT
  Age: 73 Year
  Sex: Male
  Weight: 69 kg

DRUGS (1)
  1. YESCARTA [Suspect]
     Active Substance: AXICABTAGENE CILOLEUCEL
     Indication: Diffuse large B-cell lymphoma
     Dosage: 1 DOSAGE FORM, ONCE
     Route: 042
     Dates: start: 20220306, end: 20220306

REACTIONS (9)
  - Immune effector cell-associated neurotoxicity syndrome [Recovered/Resolved]
  - Encephalopathy [Unknown]
  - Fatigue [Unknown]
  - Aphasia [Unknown]
  - Confusional state [Unknown]
  - Memory impairment [Unknown]
  - Somnolence [Unknown]
  - Agitation [Unknown]
  - Tremor [Unknown]

NARRATIVE: CASE EVENT DATE: 20220312
